FAERS Safety Report 5571829-1 (Version None)
Quarter: 2007Q4

REPORT INFORMATION
  Report Type: 
  Country: None (occurrence: None)
  Receive Date: 20071221
  Receipt Date: 20071220
  Transmission Date: 20080405
  Serious: Yes (Other)
  Sender: FDA-Public Use
  Company Number: B0500812A

PATIENT
  Age: 3 Month
  Sex: Female
  Weight: 3.8 kg

DRUGS (9)
  1. ZIDOVUDINE [Suspect]
     Indication: ANTIVIRAL PROPHYLAXIS
     Dosage: 4MGK TWICE PER DAY
     Route: 048
     Dates: start: 20070912
  2. NEVIRAPINE [Suspect]
     Indication: ANTIVIRAL PROPHYLAXIS
     Dosage: 6MG SINGLE DOSE
     Route: 048
     Dates: start: 20070912, end: 20070912
  3. COMBIVIR [Suspect]
     Indication: ANTIVIRAL PROPHYLAXIS
     Dosage: 1TAB TWICE PER DAY
     Dates: start: 20070629
  4. NEVIRAPINE [Suspect]
     Dosage: 200MG TWICE PER DAY
     Dates: start: 20070629
  5. ZIDOVUDINE [Suspect]
     Dosage: 200MG TWICE PER DAY
     Dates: start: 20070912, end: 20070912
  6. CEFOTAXIME [Concomitant]
  7. COTRIM [Concomitant]
  8. POTASSIUM CHLORIDE [Concomitant]
  9. FOLIC ACID [Concomitant]

REACTIONS (1)
  - BLOOD BICARBONATE DECREASED [None]
